FAERS Safety Report 4530993-3 (Version None)
Quarter: 2004Q4

REPORT INFORMATION
  Report Type: 
  Country: None (occurrence: None)
  Receive Date: 20041217
  Receipt Date: 20041210
  Transmission Date: 20050328
  Serious: Yes (Disabling)
  Sender: FDA-Public Use
  Company Number: US-MERCK-0412USA01346

PATIENT
  Age: 39 Year
  Sex: Male

DRUGS (1)
  1. VIOXX [Suspect]
     Indication: ARTHRALGIA
     Route: 048
     Dates: start: 20001128, end: 20010301

REACTIONS (4)
  - ANOREXIA [None]
  - DECREASED APPETITE [None]
  - HEADACHE [None]
  - MALAISE [None]
